FAERS Safety Report 9192762 (Version 1)
Quarter: 2013Q1

REPORT INFORMATION
  Report Type: Spontaneous
  Country: GB (occurrence: GB)
  Receive Date: 20130327
  Receipt Date: 20130327
  Transmission Date: 20140127
  Serious: Yes (Other)
  Sender: FDA-Public Use
  Company Number: GB-MYLANLABS-2013S1006130

PATIENT
  Age: 54 Year
  Sex: Male
  Weight: 110 kg

DRUGS (6)
  1. OMEPRAZOLE [Suspect]
     Indication: DYSPEPSIA
     Route: 048
     Dates: start: 201212, end: 20130101
  2. ASPIRIN [Concomitant]
     Indication: PRODUCT USED FOR UNKNOWN INDICATION
  3. BISOPROLOL [Concomitant]
     Indication: PRODUCT USED FOR UNKNOWN INDICATION
  4. DILTIAZEM HYDROCHLORIDE [Concomitant]
     Indication: PRODUCT USED FOR UNKNOWN INDICATION
  5. LISINOPRIL [Concomitant]
     Indication: PRODUCT USED FOR UNKNOWN INDICATION
  6. SIMVASTATIN [Concomitant]
     Indication: PRODUCT USED FOR UNKNOWN INDICATION

REACTIONS (3)
  - Discomfort [Unknown]
  - Hypoaesthesia [Recovered/Resolved]
  - Paraesthesia oral [Recovered/Resolved]
